FAERS Safety Report 7033649-0 (Version None)
Quarter: 2010Q4

REPORT INFORMATION
  Report Type: 
  Country: None (occurrence: None)
  Receive Date: 20101005
  Receipt Date: 20100920
  Transmission Date: 20110411
  Serious: Yes (Other)
  Sender: FDA-Public Use
  Company Number: 2010-3345

PATIENT
  Age: 12 Year
  Sex: Male

DRUGS (3)
  1. APOMORPHINE (APO-GO) (APOMORPHINE HYDROCHLORIDE) (APOMORPHINE HYDROCHL [Suspect]
     Indication: PARKINSONISM
     Dosage: INTRAVENOUS
     Route: 042
  2. PRAMIPEXOLE (PRAMIPEXOLE) [Suspect]
     Indication: PARKINSONISM
  3. SINEMET [Suspect]

REACTIONS (5)
  - ANGER [None]
  - DYSKINESIA [None]
  - DYSTONIA [None]
  - HYPERSEXUALITY [None]
  - RESPIRATORY DISORDER [None]
